FAERS Safety Report 8219390-7 (Version None)
Quarter: 2012Q1

REPORT INFORMATION
  Report Type: 
  Country: None (occurrence: None)
  Receive Date: 20120319
  Receipt Date: 20120312
  Transmission Date: 20120608
  Serious: Yes (Other)
  Sender: FDA-Public Use
  Company Number: US-PFIZER INC-2012064288

PATIENT
  Sex: Male
  Weight: 74.8 kg

DRUGS (3)
  1. IBUPROFEN (ADVIL) [Suspect]
     Indication: GASTRIC DISORDER
     Dosage: 6000 MG, 3X/DAY
     Route: 048
     Dates: start: 20120306, end: 20120308
  2. IBUPROFEN (ADVIL) [Suspect]
     Indication: TOOTHACHE
     Dosage: 800 MG, 3X/DAY
     Route: 048
     Dates: start: 20120308, end: 20120311
  3. CLONIDINE [Concomitant]
     Dosage: 0.1 MG, 3X/DAY

REACTIONS (6)
  - OVERDOSE [None]
  - DRUG INEFFECTIVE [None]
  - ABDOMINAL DISCOMFORT [None]
  - ABDOMINAL PAIN UPPER [None]
  - GASTRIC HAEMORRHAGE [None]
  - TOXICITY TO VARIOUS AGENTS [None]
